FAERS Safety Report 24420076 (Version 5)
Quarter: 2024Q4

REPORT INFORMATION
  Report Type: Spontaneous
  Country: US (occurrence: US)
  Receive Date: 20241010
  Receipt Date: 20241108
  Transmission Date: 20250115
  Serious: Yes (Other)
  Sender: ORGANON
  Company Number: US-ORGANON-O2410USA000499

PATIENT
  Sex: Female
  Weight: 84.354 kg

DRUGS (2)
  1. NEXPLANON [Suspect]
     Active Substance: ETONOGESTREL
     Indication: Contraception
     Dosage: 1 IMPLANT, LEFT UPPER ARM
     Route: 059
     Dates: start: 202401, end: 20240925
  2. NEXPLANON [Concomitant]
     Active Substance: ETONOGESTREL
     Dosage: 1 IMPLANT
     Route: 059

REACTIONS (7)
  - Pregnancy with implant contraceptive [Not Recovered/Not Resolved]
  - Device dislocation [Recovered/Resolved]
  - Unintended pregnancy [Not Recovered/Not Resolved]
  - Maternal exposure during breast feeding [Not Recovered/Not Resolved]
  - Complication associated with device [Recovered/Resolved]
  - Device placement issue [Recovered/Resolved]
  - Product dose omission issue [Unknown]

NARRATIVE: CASE EVENT DATE: 20240101
